FAERS Safety Report 10176865 (Version 1)
Quarter: 2014Q2

REPORT INFORMATION
  Report Type: Spontaneous
  Country: US (occurrence: None)
  Receive Date: 20140514
  Receipt Date: 20140514
  Transmission Date: 20141212
  Serious: Yes (Other)
  Sender: FDA-Public Use
  Company Number: ADR-2013-01778

PATIENT
  Sex: Male

DRUGS (2)
  1. BACLOFEN INTRATHECAL 3000MCG/ML [Suspect]
     Indication: MUSCLE SPASTICITY
  2. ORAL BACLOFEN [Suspect]

REACTIONS (15)
  - Muscle disorder [None]
  - Mobility decreased [None]
  - Incorrect dose administered [None]
  - Therapeutic response decreased [None]
  - Pain [None]
  - Pyrexia [None]
  - Muscle spasms [None]
  - Musculoskeletal stiffness [None]
  - Muscle spasms [None]
  - Patient-device incompatibility [None]
  - Headache [None]
  - Hyperhidrosis [None]
  - Feeling of body temperature change [None]
  - Malaise [None]
  - Memory impairment [None]
